FAERS Safety Report 23146628 (Version 2)
Quarter: 2024Q2

REPORT INFORMATION
  Report Type: Spontaneous
  Country: GB (occurrence: GB)
  Receive Date: 20231105
  Receipt Date: 20240430
  Transmission Date: 20240715
  Serious: Yes (Other)
  Sender: FDA-Public Use
  Company Number: None

PATIENT
  Age: 57 Year
  Sex: Female
  Weight: 91 kg

DRUGS (5)
  1. TOPIRAMATE [Suspect]
     Active Substance: TOPIRAMATE
     Indication: Migraine
     Dosage: 1 AT NIGHT AND INCREASE TO 2X DAILY AFTER 2 WEEKS
     Route: 065
     Dates: start: 20231012, end: 20231023
  2. ISOPROPYL MYRISTATE\MINERAL OIL [Concomitant]
     Active Substance: ISOPROPYL MYRISTATE\MINERAL OIL
     Indication: Product used for unknown indication
     Dosage: TO BE USED WHEN REQUIRED
     Route: 065
     Dates: start: 20231009
  3. BUTYLSCOPOLAMINE BROMIDE [Concomitant]
     Active Substance: BUTYLSCOPOLAMINE BROMIDE
     Indication: Product used for unknown indication
     Dosage: TWO TO BE TAKEN FOUR TIMES A DAY AS REQUIRED
     Route: 065
     Dates: start: 20230920, end: 20231019
  4. PREDNISOLONE [Concomitant]
     Active Substance: PREDNISOLONE
     Indication: Product used for unknown indication
     Dosage: FOUR TO BE TAKEN EACH DAY (TOTAL 4MG DAILY) DECREASING BY 1MG EVERY FOUR WEEKS
     Route: 065
     Dates: start: 20230809
  5. TRULICITY [Concomitant]
     Active Substance: DULAGLUTIDE
     Indication: Type 2 diabetes mellitus
     Dosage: AS DIRECTED
     Route: 065
     Dates: start: 20230913

REACTIONS (4)
  - Tearfulness [Recovered/Resolved]
  - Depressed mood [Recovered/Resolved]
  - Depressed level of consciousness [Recovered/Resolved]
  - Confusional state [Recovered/Resolved]

NARRATIVE: CASE EVENT DATE: 20231016
